FAERS Safety Report 15010633 (Version 1)
Quarter: 2018Q2

REPORT INFORMATION
  Report Type: Spontaneous
  Country: US (occurrence: US)
  Receive Date: 20180614
  Receipt Date: 20180614
  Transmission Date: 20180711
  Serious: No
  Sender: FDA-Public Use
  Company Number: US-WEST-WARD PHARMACEUTICALS CORP.-US-H14001-18-03068

PATIENT
  Age: 77 Year
  Sex: Male
  Weight: 61.29 kg

DRUGS (3)
  1. ASPIRIN. [Concomitant]
     Active Substance: ASPIRIN
     Indication: BACK PAIN
     Route: 065
  2. VITAMIN B12 [Concomitant]
     Active Substance: CYANOCOBALAMIN
     Indication: PRODUCT USED FOR UNKNOWN INDICATION
     Route: 048
  3. PREDNISONE. [Suspect]
     Active Substance: PREDNISONE
     Indication: PNEUMONIA
     Route: 048
     Dates: start: 20171129, end: 2017

REACTIONS (8)
  - Nausea [Not Recovered/Not Resolved]
  - Drug ineffective [Unknown]
  - Soliloquy [Unknown]
  - Blood pressure increased [Recovered/Resolved]
  - Photopsia [Recovered/Resolved]
  - Eye pain [Recovering/Resolving]
  - Musculoskeletal disorder [Recovering/Resolving]
  - Drug dose omission [Recovered/Resolved]

NARRATIVE: CASE EVENT DATE: 20171129
